FAERS Safety Report 13074300 (Version 1)
Quarter: 2016Q4

REPORT INFORMATION
  Report Type: Spontaneous
  Country: US (occurrence: US)
  Receive Date: 20161230
  Receipt Date: 20161230
  Transmission Date: 20170207
  Serious: No
  Sender: FDA-Public Use
  Company Number: US-GLENMARK PHARMACEUTICALS INC, USA.-2016GMK024124

PATIENT

DRUGS (5)
  1. METOPROLOL. [Concomitant]
     Active Substance: METOPROLOL
     Indication: HYPERTENSION
     Dosage: UNK, BID
     Route: 048
  2. RANEXA [Concomitant]
     Active Substance: RANOLAZINE
     Indication: CARDIAC DISORDER
     Dosage: UNK
     Route: 065
     Dates: start: 20160429, end: 201605
  3. CICLOPIROX OLAMINE CREAM [Suspect]
     Active Substance: CICLOPIROX OLAMINE
     Indication: TINEA PEDIS
     Dosage: UNK, ONE APPLICATION BID
     Route: 061
     Dates: start: 201604, end: 201607
  4. VITAMIN [Suspect]
     Active Substance: VITAMINS
     Indication: PRODUCT USED FOR UNKNOWN INDICATION
  5. CICLOPIROX. [Suspect]
     Active Substance: CICLOPIROX
     Indication: TINEA PEDIS
     Dosage: UNK UNK, BID
     Route: 061
     Dates: start: 201601, end: 201604

REACTIONS (2)
  - Urine odour abnormal [Recovering/Resolving]
  - Dizziness [Recovered/Resolved]

NARRATIVE: CASE EVENT DATE: 20160429
